FAERS Safety Report 4437421-7 (Version None)
Quarter: 2004Q3

REPORT INFORMATION
  Report Type: 
  Country: None (occurrence: None)
  Receive Date: 20040830
  Receipt Date: 20040830
  Transmission Date: 20050211
  Serious: Yes (Hospitalization, Other)
  Sender: FDA-Public Use
  Company Number: None

PATIENT
  Age: 73 Year
  Sex: Female

DRUGS (1)
  1. NPH INSULIN [Suspect]
     Dosage: 22 U IN AM-14 U HS

REACTIONS (1)
  - DIABETIC KETOACIDOSIS [None]
